FAERS Safety Report 17502324 (Version 1)
Quarter: 2020Q1

REPORT INFORMATION
  Report Type: Spontaneous
  Country: ZA (occurrence: ZA)
  Receive Date: 20200305
  Receipt Date: 20200305
  Transmission Date: 20200409
  Serious: Yes (Hospitalization, Other)
  Sender: FDA-Public Use
  Company Number: ZA-009507513-2002ZAF009911

PATIENT
  Sex: Female

DRUGS (1)
  1. IMPLANON NXT [Suspect]
     Active Substance: ETONOGESTREL
     Dosage: UNK, EVERY 3 YEARS
     Route: 059
     Dates: start: 20170729

REACTIONS (8)
  - Pregnancy with implant contraceptive [Unknown]
  - Ectopic pregnancy [Unknown]
  - Pallor [Unknown]
  - Maternal exposure during pregnancy [Unknown]
  - Hyperhidrosis [Unknown]
  - Septic shock [Unknown]
  - Unintended pregnancy [Unknown]
  - Abdominal pain [Unknown]
